FAERS Safety Report 6412070-X (Version None)
Quarter: 2009Q4

REPORT INFORMATION
  Report Type: 
  Country: None (occurrence: None)
  Receive Date: 20091023
  Receipt Date: 20091019
  Transmission Date: 20100525
  Serious: Yes (Other)
  Sender: FDA-Public Use
  Company Number: US-PFIZER INC-2009286130

PATIENT
  Sex: Male
  Weight: 104.31 kg

DRUGS (2)
  1. CHANTIX [Suspect]
     Indication: SMOKING CESSATION THERAPY
     Dates: start: 20091001, end: 20091001
  2. ATENOLOL AND CHLORTHALIDONE [Concomitant]
     Indication: BLOOD PRESSURE INCREASED

REACTIONS (4)
  - DISSOCIATION [None]
  - PARANOIA [None]
  - SELF INJURIOUS BEHAVIOUR [None]
  - SUICIDAL BEHAVIOUR [None]
